FAERS Safety Report 9256990 (Version 1)
Quarter: 2013Q2

REPORT INFORMATION
  Report Type: Spontaneous
  Country: US (occurrence: US)
  Receive Date: 20130426
  Receipt Date: 20130426
  Transmission Date: 20140414
  Serious: Yes (Hospitalization, Other)
  Sender: FDA-Public Use
  Company Number: US-ACCORD-017366

PATIENT
  Age: 57 Year
  Sex: Female

DRUGS (3)
  1. DOCETAXEL [Suspect]
     Indication: BREAST CANCER STAGE II
     Route: 042
  2. TRASTUZUMAB [Suspect]
     Indication: BREAST CANCER STAGE II
     Route: 042
  3. CARBOPLATIN [Suspect]
     Indication: BREAST CANCER STAGE II
     Dosage: AT AN AUC OF FIVE
     Route: 042

REACTIONS (1)
  - Thrombotic microangiopathy [Recovered/Resolved]
